FAERS Safety Report 20669515 (Version 18)
Quarter: 2023Q4

REPORT INFORMATION
  Report Type: Report from Study
  Country: US (occurrence: US)
  Receive Date: 20220404
  Receipt Date: 20231206
  Transmission Date: 20240110
  Serious: No
  Sender: FDA-Public Use
  Company Number: US-NOVARTISTESTPH-NVSC2022US075821

PATIENT
  Age: 64 Year
  Sex: Female
  Weight: 45.36 kg

DRUGS (3)
  1. LEQVIO [Suspect]
     Active Substance: INCLISIRAN SODIUM
     Indication: Low density lipoprotein increased
     Dosage: UNK
     Route: 058
     Dates: start: 20220307
  2. LEQVIO [Suspect]
     Active Substance: INCLISIRAN SODIUM
     Indication: Blood cholesterol increased
  3. LEQVIO [Suspect]
     Active Substance: INCLISIRAN SODIUM
     Indication: Type IIa hyperlipidaemia

REACTIONS (22)
  - Abdominal discomfort [Recovered/Resolved]
  - Diarrhoea [Recovered/Resolved]
  - Myalgia [Unknown]
  - Migraine [Unknown]
  - Food allergy [Unknown]
  - Bone pain [Unknown]
  - Fatigue [Unknown]
  - Pain [Unknown]
  - Dysphonia [Unknown]
  - Laryngitis [Unknown]
  - Weight decreased [Unknown]
  - Pain in extremity [Unknown]
  - Injection site pain [Unknown]
  - Brain fog [Recovering/Resolving]
  - COVID-19 [Recovering/Resolving]
  - Ear congestion [Recovering/Resolving]
  - Oropharyngeal pain [Recovering/Resolving]
  - Injection site swelling [Recovered/Resolved]
  - Back injury [Unknown]
  - Diarrhoea [Recovered/Resolved]
  - Hypoacusis [Unknown]
  - Malaise [Unknown]

NARRATIVE: CASE EVENT DATE: 20220409
